FAERS Safety Report 8432442-1 (Version None)
Quarter: 2012Q2

REPORT INFORMATION
  Report Type: 
  Country: None (occurrence: None)
  Receive Date: 20120613
  Receipt Date: 20120605
  Transmission Date: 20120825
  Serious: Yes (Hospitalization, Other)
  Sender: FDA-Public Use
  Company Number: US-ELI_LILLY_AND_COMPANY-US201206002142

PATIENT
  Age: 63 Year
  Sex: Male

DRUGS (4)
  1. INTEGRILIN [Concomitant]
     Indication: ACUTE MYOCARDIAL INFARCTION
     Dosage: UNK
     Dates: start: 20120602
  2. PLAVIX [Concomitant]
     Indication: ACUTE MYOCARDIAL INFARCTION
     Dosage: UNK
     Dates: start: 20120602
  3. EFFIENT [Suspect]
     Dosage: 10 MG, UNKNOWN
  4. EFFIENT [Suspect]
     Indication: ACUTE MYOCARDIAL INFARCTION
     Dosage: 60 MG, UNK
     Dates: start: 20120602

REACTIONS (2)
  - CHEST PAIN [None]
  - THROMBOSIS IN DEVICE [None]
